FAERS Safety Report 10552018 (Version 1)
Quarter: 2014Q4

REPORT INFORMATION
  Report Type: Spontaneous
  Country: US (occurrence: US)
  Receive Date: 20141029
  Receipt Date: 20141029
  Transmission Date: 20150529
  Serious: Yes (Hospitalization)
  Sender: FDA-Public Use
  Company Number: US-ASTRAZENECA-2014SE80548

PATIENT
  Age: 759 Month
  Sex: Female
  Weight: 83.9 kg

DRUGS (4)
  1. SEROQUEL [Suspect]
     Active Substance: QUETIAPINE FUMARATE
     Indication: BIPOLAR DISORDER
     Route: 048
     Dates: start: 2007
  2. DIOVAN [Concomitant]
     Active Substance: VALSARTAN
     Indication: HYPERTENSION
  3. XANAX [Concomitant]
     Active Substance: ALPRAZOLAM
     Indication: ANXIETY
     Route: 048
  4. VITAMINS [Concomitant]
     Active Substance: VITAMINS

REACTIONS (22)
  - Mental disorder [Unknown]
  - Hypophagia [Unknown]
  - Derealisation [Not Recovered/Not Resolved]
  - Insomnia [Not Recovered/Not Resolved]
  - Crying [Unknown]
  - Feeling abnormal [Unknown]
  - Screaming [Recovered/Resolved]
  - Anxiety [Not Recovered/Not Resolved]
  - Tachyphrenia [Not Recovered/Not Resolved]
  - Feeling abnormal [Not Recovered/Not Resolved]
  - Road traffic accident [Unknown]
  - Depressed mood [Unknown]
  - Hypersomnia [Unknown]
  - Malaise [Not Recovered/Not Resolved]
  - Decreased activity [Not Recovered/Not Resolved]
  - Mood swings [Not Recovered/Not Resolved]
  - Asthenia [Unknown]
  - Off label use [Unknown]
  - Weight decreased [Unknown]
  - Fatigue [Not Recovered/Not Resolved]
  - Impaired work ability [Unknown]
  - Weight increased [Unknown]

NARRATIVE: CASE EVENT DATE: 201408
